FAERS Safety Report 23842562 (Version 1)
Quarter: 2024Q2

REPORT INFORMATION
  Report Type: Spontaneous
  Country: CA (occurrence: CA)
  Receive Date: 20240510
  Receipt Date: 20240510
  Transmission Date: 20240715
  Serious: Yes (Other)
  Sender: FDA-Public Use
  Company Number: CA-TEVA-VS-3196985

PATIENT
  Age: 21 Year
  Sex: Female

DRUGS (19)
  1. VALGANCICLOVIR HYDROCHLORIDE [Suspect]
     Active Substance: VALGANCICLOVIR HYDROCHLORIDE
     Indication: Cytomegalovirus chorioretinitis
     Route: 048
  2. FLUDARABINE PHOSPHATE [Suspect]
     Active Substance: FLUDARABINE PHOSPHATE
     Indication: Prophylaxis against transplant rejection
     Route: 042
  3. CYCLOPHOSPHAMIDE [Suspect]
     Active Substance: CYCLOPHOSPHAMIDE
     Indication: Prophylaxis against transplant rejection
     Route: 065
  4. ACYCLOVIR [Concomitant]
     Active Substance: ACYCLOVIR
     Route: 065
  5. AMOXICILLIN AND CLAVULANATE POTASSIUM [Concomitant]
     Active Substance: AMOXICILLIN\CLAVULANATE POTASSIUM
     Route: 065
  6. BECLOMETHASONE [Concomitant]
     Active Substance: BECLOMETHASONE
     Route: 065
  7. BUDESONIDE [Concomitant]
     Active Substance: BUDESONIDE
     Route: 065
  8. CIPROFLOXACIN [Concomitant]
     Active Substance: CIPROFLOXACIN
     Route: 065
  9. RITUXIMAB [Suspect]
     Active Substance: RITUXIMAB
     Indication: Epstein-Barr virus infection
     Route: 065
  10. GANCICLOVIR [Suspect]
     Active Substance: GANCICLOVIR
     Indication: Varicella zoster virus infection
     Route: 065
  11. GANCICLOVIR [Suspect]
     Active Substance: GANCICLOVIR
     Indication: Varicella zoster virus infection
     Route: 065
  12. GANCICLOVIR [Suspect]
     Active Substance: GANCICLOVIR
     Indication: Varicella zoster virus infection
     Route: 042
  13. DAUNORUBICIN [Suspect]
     Active Substance: DAUNORUBICIN
     Indication: Prophylaxis against transplant rejection
     Route: 042
  14. CYTARABINE [Suspect]
     Active Substance: CYTARABINE
     Indication: Prophylaxis against transplant rejection
     Dosage: DOSE FORM: POWDER FOR SOLUTION INTRATHECAL
     Route: 039
  15. FLUCONAZOLE [Concomitant]
     Active Substance: FLUCONAZOLE
     Route: 065
  16. FOSCARNET SODIUM [Concomitant]
     Active Substance: FOSCARNET SODIUM
     Route: 042
  17. PIPERACILLIN SODIUM\TAZOBACTAM SODIUM [Concomitant]
     Active Substance: PIPERACILLIN SODIUM\TAZOBACTAM SODIUM
     Route: 065
  18. PREVYMIS [Concomitant]
     Active Substance: LETERMOVIR
     Route: 065
  19. SEPTRA [Concomitant]
     Active Substance: SULFAMETHOXAZOLE\TRIMETHOPRIM
     Route: 065

REACTIONS (4)
  - Cytomegalovirus infection [Unknown]
  - Retinitis viral [Unknown]
  - Varicella zoster virus infection [Unknown]
  - Off label use [Unknown]
